FAERS Safety Report 9058423 (Version 1)
Quarter: 2013Q1

REPORT INFORMATION
  Report Type: Spontaneous
  Country: US (occurrence: US)
  Receive Date: 20130211
  Receipt Date: 20130211
  Transmission Date: 20140127
  Serious: Yes (Other)
  Sender: FDA-Public Use
  Company Number: US-JNJFOC-20130201341

PATIENT
  Sex: 0

DRUGS (5)
  1. DOXORUBICIN [Suspect]
     Indication: TRANSITIONAL CELL CARCINOMA
     Dosage: ON DAY 3: 50 MG/M2/45 MG/M2 OVER 15 MIN AS A PERIPHERAL IV INFUSION/OVER 12 TO 18 H VIA CENTRAL LINE
     Route: 042
  2. IFOSFAMIDE [Suspect]
     Indication: TRANSITIONAL CELL CARCINOMA
     Dosage: 2000 MG/M2 DAILY OR 1500 MG/M2 INFUSED OVER 3 HOURS DAILY ON DAYS 1 THROUGH 4
     Route: 065
  3. MESNA [Suspect]
     Indication: TRANSITIONAL CELL CARCINOMA
     Dosage: ON DAYS 1 THROUGH 4 OR 225 MG/M2 INFUSED OVER 15 MIN AT H - 0, 3, 7, 11 DAILY ON DAYS 1 THROUGH 4
     Route: 065
  4. GEMCITABINE [Suspect]
     Indication: TRANSITIONAL CELL CARCINOMA
     Dosage: 200 MG/M2 ON DAYS 2 AND 4 OR 150 MG/M2 INFUSED OVER 30 MINUTES ON DAYS 2 AND 4 ONLY
     Route: 065
  5. SODIUM ACETATE [Concomitant]
     Indication: FLUID REPLACEMENT
     Route: 065

REACTIONS (2)
  - Platelet transfusion [Unknown]
  - Off label use [Unknown]
